FAERS Safety Report 9022623 (Version 4)
Quarter: 2013Q3

REPORT INFORMATION
  Report Type: Report from Study
  Country: IT (occurrence: IT)
  Receive Date: 20130117
  Receipt Date: 20130730
  Transmission Date: 20140515
  Serious: Yes (Hospitalization)
  Sender: FDA-Public Use
  Company Number: IT-ASTRAZENECA-2012SE90954

PATIENT
  Age: 24539 Day
  Sex: Female

DRUGS (14)
  1. VANDETANIB [Suspect]
     Indication: MEDULLARY THYROID CANCER
     Route: 048
     Dates: start: 20121010, end: 20121030
  2. VANDETANIB [Suspect]
     Indication: MEDULLARY THYROID CANCER
     Route: 048
     Dates: start: 20121108, end: 20121128
  3. VANDETANIB [Suspect]
     Indication: MEDULLARY THYROID CANCER
     Dosage: DAILY, REDUCED DOSE
     Route: 048
     Dates: start: 20121211, end: 20130108
  4. VANDETANIB [Suspect]
     Indication: MEDULLARY THYROID CANCER
     Dosage: DAILY, REDUCED DOSE
     Route: 048
     Dates: start: 20130109, end: 20130131
  5. EUTIROX [Concomitant]
     Indication: POST PROCEDURAL HYPOTHYROIDISM
     Route: 048
  6. METOCAL [Concomitant]
     Indication: MINERAL SUPPLEMENTATION
     Route: 048
  7. ROCALTROL [Concomitant]
     Indication: VITAMIN SUPPLEMENTATION
     Route: 048
  8. SIVASTIN [Concomitant]
     Indication: BLOOD CHOLESTEROL ABNORMAL
     Route: 048
  9. CONGESCOR [Concomitant]
     Indication: CORONARY ARTERY DISEASE
     Route: 048
  10. CONGESCOR [Concomitant]
     Indication: HYPERTENSION
     Route: 048
  11. MATRIFEN [Concomitant]
     Indication: NECK PAIN
     Dosage: 1 PLASTER EVERY 60 HOURS
     Route: 003
  12. OLMESARTAN MEDOXIMIL/IDROCLOROTIAZIDE [Concomitant]
     Indication: HYPERTENSION
     Route: 048
     Dates: start: 20121023
  13. CALCIUM GLUCONATE [Concomitant]
     Indication: HYPOCALCAEMIA
     Dosage: 6 VIALS DAILY
     Route: 042
     Dates: start: 20121128, end: 20121205
  14. COLLIRIUM [Concomitant]
     Indication: CONJUNCTIVITIS
     Route: 047
     Dates: start: 20121128, end: 20121205

REACTIONS (1)
  - Cholecystitis acute [Recovered/Resolved]
